FAERS Safety Report 5102527-6 (Version None)
Quarter: 2006Q3

REPORT INFORMATION
  Report Type: 
  Country: None (occurrence: None)
  Receive Date: 20060907
  Receipt Date: 20060826
  Transmission Date: 20061208
  Serious: Yes (Other)
  Sender: FDA-Public Use
  Company Number: 2005141601

PATIENT
  Age: 67 Year
  Sex: Female
  Weight: 52.6173 kg

DRUGS (12)
  1. CELEBREX [Suspect]
     Indication: OSTEOARTHRITIS
     Dosage: 200 MG (100 MG, 2 IN 1 D),
     Dates: end: 20051003
  2. CELEBREX [Suspect]
     Indication: ROTATOR CUFF SYNDROME
     Dosage: 200 MG (100 MG, 2 IN 1 D),
     Dates: end: 20051003
  3. DIFLUCAN [Suspect]
     Indication: FUNGAL INFECTION
     Dosage: 100 MG (100 MG, 1 IN 1 D),
     Dates: start: 20050913, end: 20050913
  4. ARTHROTEC [Suspect]
     Indication: DRUG USE FOR UNKNOWN INDICATION
  5. CYTOTEC [Suspect]
     Indication: GASTRIC DISORDER
  6. RANITIDINE HYDROCHLORIDE [Suspect]
     Indication: GASTRIC DISORDER
     Dates: end: 20060101
  7. MISOPROSTOL [Suspect]
     Indication: GASTRIC DISORDER
  8. SINEMET [Concomitant]
  9. PREMARIN [Concomitant]
  10. PROVERA [Concomitant]
  11. VALIUM [Concomitant]
  12. VOLTAREN [Concomitant]

REACTIONS (19)
  - ABDOMINAL PAIN UPPER [None]
  - CONDITION AGGRAVATED [None]
  - CONSTIPATION [None]
  - DIARRHOEA [None]
  - DRUG HYPERSENSITIVITY [None]
  - DYSPEPSIA [None]
  - FAECES DISCOLOURED [None]
  - FALL [None]
  - FUNGAL CYSTITIS [None]
  - HALLUCINATION [None]
  - HYPERSENSITIVITY [None]
  - OEDEMA [None]
  - OESOPHAGEAL PAIN [None]
  - PARKINSON'S DISEASE [None]
  - PATELLA FRACTURE [None]
  - RASH [None]
  - ULCER [None]
  - ULCER HAEMORRHAGE [None]
  - URINARY TRACT INFECTION [None]
